FAERS Safety Report 21207826 (Version 1)
Quarter: 2022Q3

REPORT INFORMATION
  Report Type: Report from Study
  Country: TH (occurrence: TH)
  Receive Date: 20220812
  Receipt Date: 20220812
  Transmission Date: 20221027
  Serious: Yes (Other)
  Sender: FDA-Public Use
  Company Number: TH-Accord-273037

PATIENT
  Age: 2 Year
  Sex: Male

DRUGS (4)
  1. CARBOPLATIN [Suspect]
     Active Substance: CARBOPLATIN
     Indication: Bone marrow conditioning regimen
     Dosage: 700 MG/M2, 3-DAY COURSE FOR A TOTAL OF 2 COURSES
  2. CISPLATIN [Suspect]
     Active Substance: CISPLATIN
     Indication: Germ cell cancer
  3. ETOPOSIDE [Suspect]
     Active Substance: ETOPOSIDE
     Indication: Bone marrow conditioning regimen
     Dosage: 3-DAY COURSE FOR A TOTAL OF 2 COURSES
  4. ETOPOSIDE [Concomitant]
     Active Substance: ETOPOSIDE
     Indication: Product used for unknown indication
     Dosage: 3 CYCLES OF ORAL ETOPOSIDE 50 MG/M2 /DAY FOR 21 DAYS OF A 28- DAY COURSE AFTER BMT
     Route: 048

REACTIONS (2)
  - Streptococcal sepsis [Unknown]
  - Ototoxicity [Unknown]
